FAERS Safety Report 17248695 (Version 2)
Quarter: 2020Q1

REPORT INFORMATION
  Report Type: Spontaneous
  Country: DE (occurrence: DE)
  Receive Date: 20200108
  Receipt Date: 20200316
  Transmission Date: 20200409
  Serious: Yes (Other)
  Sender: FDA-Public Use
  Company Number: DE-INDIVIOR EUROPE LIMITED-INDV-123080-2020

PATIENT
  Sex: Female

DRUGS (1)
  1. TEMGESIC INJECTION [Suspect]
     Active Substance: BUPRENORPHINE HYDROCHLORIDE
     Indication: PRODUCT USED FOR UNKNOWN INDICATION
     Dosage: UNK (55 ML IN PUMP FOR 16 YEARS)
     Route: 065

REACTIONS (2)
  - Drug withdrawal syndrome [Recovered/Resolved]
  - Nephrolithiasis [Not Recovered/Not Resolved]
